FAERS Safety Report 10223094 (Version 6)
Quarter: 2014Q4

REPORT INFORMATION
  Report Type: Report from Study
  Country: IT (occurrence: IT)
  Receive Date: 20140607
  Receipt Date: 20141113
  Transmission Date: 20150528
  Serious: Yes (Hospitalization, Other)
  Sender: FDA-Public Use
  Company Number: PHHO2014IT008137

PATIENT
  Age: 62 Year
  Sex: Male
  Weight: 68 kg

DRUGS (5)
  1. AZATIOPRINA//AZATHIOPRINE [Suspect]
     Active Substance: AZATHIOPRINE
     Dosage: 50 MG, 1 CP TWICE A DAY
     Route: 065
     Dates: start: 19920615, end: 20021015
  2. GILENYA [Suspect]
     Active Substance: FINGOLIMOD HYDROCHLORIDE
     Indication: MULTIPLE SCLEROSIS
     Dosage: 0.5 MG, QD
     Route: 048
     Dates: start: 20110307, end: 20120320
  3. AZATIOPRINA//AZATHIOPRINE [Suspect]
     Active Substance: AZATHIOPRINE
     Dosage: 50 MG, 1 CP TWICE A DAY
     Route: 065
     Dates: start: 20040105, end: 20060615
  4. FOSICOMBI [Concomitant]
     Active Substance: FOSINOPRIL SODIUM\HYDROCHLOROTHIAZIDE
     Indication: HYPERTENSION
     Dosage: 1 DF (20+12.5 MG), ONCE
     Route: 048
     Dates: start: 20080507
  5. URODIE [Concomitant]
     Indication: BENIGN PROSTATIC HYPERPLASIA
     Dosage: 3 MG, ONCE
     Route: 048
     Dates: start: 20090615

REACTIONS (1)
  - Prostate cancer [Recovered/Resolved]

NARRATIVE: CASE EVENT DATE: 20140512
